FAERS Safety Report 10295720 (Version 1)
Quarter: 2014Q3

REPORT INFORMATION
  Report Type: Spontaneous
  Country: US (occurrence: US)
  Receive Date: 20140710
  Receipt Date: 20140710
  Transmission Date: 20150326
  Serious: No
  Sender: FDA-Public Use
  Company Number: US-PURDUE-USA-2014-0115128

PATIENT
  Age: 55 Year
  Sex: Female

DRUGS (4)
  1. BUTRANS [Suspect]
     Active Substance: BUPRENORPHINE
     Dosage: 15 MCG/HR, WEEKLY
     Route: 062
     Dates: start: 201405, end: 201405
  2. BUTRANS [Suspect]
     Active Substance: BUPRENORPHINE
     Dosage: 5 MCG/HR, WEEKLY
     Route: 062
     Dates: start: 201310, end: 201312
  3. BUTRANS [Suspect]
     Active Substance: BUPRENORPHINE
     Dosage: 10 MCG/HR, WEEKLY
     Route: 062
     Dates: start: 201312, end: 201405
  4. BUTRANS [Suspect]
     Active Substance: BUPRENORPHINE
     Indication: PAIN
     Dosage: 10 MCG/HR, WEEKLY
     Route: 062
     Dates: start: 201405, end: 201406

REACTIONS (8)
  - Application site scar [Unknown]
  - Malaise [Unknown]
  - Application site pruritus [Unknown]
  - Application site inflammation [Unknown]
  - Drug ineffective [Unknown]
  - Vomiting [Unknown]
  - Application site vesicles [Unknown]
  - Nausea [Unknown]

NARRATIVE: CASE EVENT DATE: 201312
